FAERS Safety Report 23145574 (Version 2)
Quarter: 2023Q4

REPORT INFORMATION
  Report Type: Spontaneous
  Country: ES (occurrence: ES)
  Receive Date: 20231103
  Receipt Date: 20231201
  Transmission Date: 20240110
  Serious: Yes (Other)
  Sender: FDA-Public Use
  Company Number: ES-AMERICAN REGENT INC-2023002525

PATIENT
  Age: 64 Year
  Sex: Female

DRUGS (8)
  1. FERINJECT [Suspect]
     Active Substance: FERRIC CARBOXYMALTOSE
     Indication: Anaemia
     Dosage: UNK
     Route: 042
  2. VENOFER [Suspect]
     Active Substance: IRON SUCROSE
     Indication: Anaemia
     Dosage: UNK
     Route: 042
  3. MORPHINE [Suspect]
     Active Substance: MORPHINE
     Indication: Pain
     Dosage: UNK
     Route: 065
  4. ABEMACICLIB [Suspect]
     Active Substance: ABEMACICLIB
     Indication: Breast cancer metastatic
     Dosage: 150 MILLIGRAM, UNKNOWN
     Route: 048
     Dates: start: 202310
  5. ABEMACICLIB [Suspect]
     Active Substance: ABEMACICLIB
     Dosage: 150 MILLIGRAM, BID (150 MG, 2 IN 1 D)
     Route: 048
     Dates: start: 202307, end: 20230819
  6. ABEMACICLIB [Suspect]
     Active Substance: ABEMACICLIB
     Dosage: 150 MILLIGRAM, UNKNOWN
     Route: 048
     Dates: start: 20230903, end: 2023
  7. ABEMACICLIB [Suspect]
     Active Substance: ABEMACICLIB
     Dosage: 100 MILLIGRAM, UNKNOWN
     Route: 048
     Dates: start: 202310
  8. FULVESTRANT [Concomitant]
     Active Substance: FULVESTRANT
     Indication: Breast cancer metastatic
     Dosage: UNK
     Route: 065

REACTIONS (16)
  - Pulmonary oedema [Recovering/Resolving]
  - Feeding disorder [Recovering/Resolving]
  - Mobility decreased [Recovering/Resolving]
  - Anaemia [Recovering/Resolving]
  - Sleep deficit [Unknown]
  - Decreased appetite [Recovering/Resolving]
  - Pain [Recovering/Resolving]
  - Abdominal distension [Unknown]
  - Asthenia [Unknown]
  - Swelling of eyelid [Not Recovered/Not Resolved]
  - Diarrhoea [Recovering/Resolving]
  - Dizziness [Recovering/Resolving]
  - Nausea [Recovering/Resolving]
  - Abdominal pain [Recovering/Resolving]
  - Abdominal pain upper [Recovering/Resolving]
  - Vomiting [Recovering/Resolving]

NARRATIVE: CASE EVENT DATE: 20230701
